FAERS Safety Report 21499256 (Version 1)
Quarter: 2022Q4

REPORT INFORMATION
  Report Type: Spontaneous
  Country: US (occurrence: None)
  Receive Date: 20221023
  Receipt Date: 20221023
  Transmission Date: 20230112
  Serious: Yes (unspecified)
  Sender: FDA-Public Use
  Company Number: None

PATIENT
  Age: 40 Year
  Sex: Female
  Weight: 105.75 kg

DRUGS (1)
  1. SEMAGLUTIDE [Suspect]
     Active Substance: SEMAGLUTIDE
     Indication: Type 2 diabetes mellitus
     Dosage: OTHER FREQUENCY : ONCE PER WEEK;?
     Route: 058
     Dates: start: 20221022

REACTIONS (17)
  - Therapy change [None]
  - Nausea [None]
  - Malaise [None]
  - Feeling hot [None]
  - Dizziness [None]
  - Cold sweat [None]
  - Gait disturbance [None]
  - Loss of consciousness [None]
  - Tinnitus [None]
  - Nervousness [None]
  - Asthenia [None]
  - Hyperhidrosis [None]
  - Skin discolouration [None]
  - Hypoglycaemia [None]
  - Multiple injuries [None]
  - Pain [None]
  - Fall [None]

NARRATIVE: CASE EVENT DATE: 20221022
